FAERS Safety Report 4313787-3 (Version None)
Quarter: 2004Q1

REPORT INFORMATION
  Report Type: 
  Country: None (occurrence: None)
  Receive Date: 20040305
  Receipt Date: 20040220
  Transmission Date: 20041129
  Serious: Yes (Hospitalization)
  Sender: FDA-Public Use
  Company Number: CERZ-10505

PATIENT
  Age: 82 Year
  Sex: Female
  Weight: 61.5 kg

DRUGS (3)
  1. CEREZYME [Suspect]
     Indication: GAUCHER'S DISEASE
     Dosage: 60 U/KG Q2WKS IV
     Route: 042
     Dates: start: 20030602, end: 20040101
  2. CEREZYME [Suspect]
     Indication: GAUCHER'S DISEASE
     Dosage: 60 U/KG QWK IV
     Route: 042
     Dates: start: 20040101, end: 20040101
  3. CEREZYME [Suspect]
     Indication: GAUCHER'S DISEASE
     Dosage: 60 U/KG UNK IV
     Route: 042
     Dates: start: 20040101

REACTIONS (4)
  - ARTHRALGIA [None]
  - ASEPTIC NECROSIS BONE [None]
  - BONE DISORDER [None]
  - GROIN PAIN [None]
